FAERS Safety Report 17473370 (Version 1)
Quarter: 2020Q1

REPORT INFORMATION
  Report Type: Report from Study
  Country: CO (occurrence: CO)
  Receive Date: 20200228
  Receipt Date: 20200228
  Transmission Date: 20200409
  Serious: Yes (Death, Life-Threatening, Hospitalization, Other)
  Sender: FDA-Public Use
  Company Number: CO-JNJFOC-20191247379

PATIENT
  Age: 22 Year
  Sex: Male
  Weight: 46 kg

DRUGS (9)
  1. ATENOLOL. [Concomitant]
     Active Substance: ATENOLOL
     Route: 065
     Dates: start: 201504
  2. STELARA [Suspect]
     Active Substance: USTEKINUMAB
     Indication: PSORIATIC ARTHROPATHY
  3. CIPROFLOXACIN. [Concomitant]
     Active Substance: CIPROFLOXACIN
     Route: 065
     Dates: start: 201504
  4. STELARA [Suspect]
     Active Substance: USTEKINUMAB
     Indication: PSORIASIS
     Route: 058
     Dates: start: 20121228
  5. TRAMADOL. [Concomitant]
     Active Substance: TRAMADOL
     Route: 048
  6. SERTRALINE [Concomitant]
     Active Substance: SERTRALINE HYDROCHLORIDE
     Route: 065
     Dates: start: 201504
  7. ACETAMINOPHEN. [Concomitant]
     Active Substance: ACETAMINOPHEN
     Route: 048
  8. PREDNISOLONE. [Concomitant]
     Active Substance: PREDNISOLONE
     Route: 048
     Dates: start: 20150401
  9. ENOXAPARIN [Concomitant]
     Active Substance: ENOXAPARIN
     Route: 065
     Dates: start: 201504

REACTIONS (13)
  - Osteomyelitis [Unknown]
  - Psoriasis [Not Recovered/Not Resolved]
  - Postoperative wound infection [Unknown]
  - Dermatomyositis [Unknown]
  - Calcinosis [Unknown]
  - Herpes virus infection [Not Recovered/Not Resolved]
  - Mitral valve replacement [Not Recovered/Not Resolved]
  - Pneumonia [Recovered/Resolved]
  - Death [Fatal]
  - Tonsillitis [Not Recovered/Not Resolved]
  - Arthralgia [Unknown]
  - Depression [Not Recovered/Not Resolved]
  - Insomnia [Unknown]

NARRATIVE: CASE EVENT DATE: 2015
